FAERS Safety Report 6599804-9 (Version None)
Quarter: 2010Q1

REPORT INFORMATION
  Report Type: 
  Country: None (occurrence: None)
  Receive Date: 20100217
  Receipt Date: 20100203
  Transmission Date: 20100710
  Serious: Yes (Other)
  Sender: FDA-Public Use
  Company Number: 496309

PATIENT
  Age: 54 Year
  Sex: Male
  Weight: 110.7 kg

DRUGS (3)
  1. OXALIPLATIN [Suspect]
     Indication: CHEMOTHERAPY
     Dosage: 195 MG OVER 2 HOURS, EVERY 2 WEEKS, 45 MG INTRAVENOUS
     Route: 042
     Dates: start: 20091203, end: 20100112
  2. OXALIPLATIN [Suspect]
     Indication: CHEMOTHERAPY
     Dosage: 195 MG OVER 2 HOURS, EVERY 2 WEEKS, 45 MG INTRAVENOUS
     Route: 042
     Dates: start: 20100126, end: 20100126
  3. OXALIPLATIN [Suspect]
     Indication: CHEMOTHERAPY
     Dosage: 195 MG OVER 2 HOURS, EVERY 2 WEEKS, 45 MG INTRAVENOUS
     Route: 042
     Dates: start: 20100209

REACTIONS (5)
  - ABDOMINAL PAIN [None]
  - DIZZINESS [None]
  - DYSPNOEA [None]
  - HYPERHIDROSIS [None]
  - RASH [None]
